FAERS Safety Report 6376148-1 (Version None)
Quarter: 2009Q3

REPORT INFORMATION
  Report Type: 
  Country: None (occurrence: None)
  Receive Date: 20090921
  Receipt Date: 20090903
  Transmission Date: 20100115
  Serious: Yes (Hospitalization)
  Sender: FDA-Public Use
  Company Number: 1000007655

PATIENT
  Age: 10 Year
  Sex: Female
  Weight: 28 kg

DRUGS (3)
  1. FOSFOMYCIN (FOSFOMYCIN TROMETAMOL) (GRANULATE) [Suspect]
     Indication: VULVITIS
     Dosage: (3 GM, ONCE), ORAL
     Route: 048
     Dates: start: 20090607, end: 20090607
  2. SMECTA (POWDER) [Suspect]
     Indication: DIARRHOEA
     Dosage: (2 DOSAGE FORMS, ONCE), ORAL
     Route: 048
     Dates: start: 20090611, end: 20090611
  3. SPASFON [Suspect]
     Indication: ABDOMINAL PAIN
     Dosage: (1 DOSAGE FORMS, ONCE), ORAL
     Route: 048
     Dates: start: 20090611, end: 20090611

REACTIONS (5)
  - ASTHENIA [None]
  - CHOLESTASIS [None]
  - CYTOLYTIC HEPATITIS [None]
  - JAUNDICE [None]
  - STREPTOCOCCAL BACTERAEMIA [None]
